FAERS Safety Report 9448766 (Version 2)
Quarter: 2013Q3

REPORT INFORMATION
  Report Type: Report from Study
  Country: TH (occurrence: TH)
  Receive Date: 20130808
  Receipt Date: 20130814
  Transmission Date: 20140515
  Serious: Yes (Hospitalization)
  Sender: FDA-Public Use
  Company Number: PHHO2013TH010262

PATIENT
  Age: 68 Year
  Sex: Female

DRUGS (8)
  1. CAFERGOT [Suspect]
  2. FCC H5N1 TURKEY [Suspect]
     Indication: IMMUNISATION
     Route: 030
     Dates: start: 20130304
  3. BLINDED FCC H5N1 TURKEY [Suspect]
     Indication: IMMUNISATION
     Route: 030
     Dates: start: 20130304
  4. BLINDED NO VACCINATION RECEIVED [Suspect]
     Indication: IMMUNISATION
     Route: 030
     Dates: start: 20130304
  5. BLINDED FCC H5N1 TURKEY [Suspect]
     Route: 030
     Dates: start: 20130325
  6. BLINDED FCC H5N1 TURKEY [Suspect]
     Route: 030
     Dates: start: 20130325
  7. BLINDED NO VACCINATION RECEIVED [Suspect]
     Route: 030
     Dates: start: 20130325
  8. CHLORPROMAZINE [Concomitant]
     Indication: MIGRAINE
     Dosage: 25 MG, H2
     Route: 048
     Dates: start: 20130711

REACTIONS (1)
  - Headache [Recovering/Resolving]
